FAERS Safety Report 16966131 (Version 4)
Quarter: 2020Q1

REPORT INFORMATION
  Report Type: Report from Study
  Country: JP (occurrence: JP)
  Receive Date: 20191028
  Receipt Date: 20200320
  Transmission Date: 20200409
  Serious: Yes (Hospitalization)
  Sender: FDA-Public Use
  Company Number: JP-KYOWAKIRIN-2019AKK016831

PATIENT

DRUGS (24)
  1. LIORESAL [Concomitant]
     Active Substance: BACLOFEN
     Indication: TROPICAL SPASTIC PARESIS
     Dosage: 5 MG, BID
     Route: 048
     Dates: end: 20191023
  2. LOXOPROFEN NA [Concomitant]
     Active Substance: LOXOPROFEN SODIUM
     Indication: ENCEPHALITIS
     Dosage: 60 MG, PRN
     Route: 048
     Dates: start: 20191021, end: 20191023
  3. HIRUDOID [Concomitant]
     Active Substance: GLYCOSAMINOGLYCANS
     Dosage: ADEQUATE DOSE, BID
     Route: 061
     Dates: start: 20191119
  4. PREDNISOLONE. [Concomitant]
     Active Substance: PREDNISOLONE
     Indication: TROPICAL SPASTIC PARESIS
     Dosage: 10 MG, QD
     Route: 048
     Dates: start: 20160228, end: 20191023
  5. PREDNISOLONE. [Concomitant]
     Active Substance: PREDNISOLONE
     Dosage: 50 MG, QD
     Route: 048
     Dates: start: 20191104, end: 20191111
  6. PREDNISOLONE. [Concomitant]
     Active Substance: PREDNISOLONE
     Dosage: 25 MG, QD
     Route: 048
     Dates: start: 20191206, end: 20191212
  7. PREDNISOLONE. [Concomitant]
     Active Substance: PREDNISOLONE
     Dosage: 20 MG, QD
     Route: 048
     Dates: start: 20191213, end: 20200106
  8. CARBOCISTEINE [Concomitant]
     Active Substance: CARBOCYSTEINE
     Indication: ENCEPHALITIS
     Dosage: 250 MG, TID
     Route: 048
     Dates: start: 20191021, end: 20191023
  9. KINDAVATE [Concomitant]
     Active Substance: CLOBETASONE BUTYRATE
     Indication: RASH
     Dosage: ADEQUATE DOSE, BID
     Route: 061
     Dates: start: 20181105, end: 20191023
  10. PASTARON [Concomitant]
     Active Substance: UREA
     Indication: RASH
     Dosage: ADEQUATE DOSE, BID
     Route: 061
     Dates: start: 20190716, end: 20191023
  11. PREDNISOLONE. [Concomitant]
     Active Substance: PREDNISOLONE
     Dosage: 15 MG, QD
     Route: 048
     Dates: start: 20200107
  12. GLYDIL [CHLORPHENAMINE MALEATE;GUAIFENESIN;METHYLEPHEDRINE HYDROCHLORI [Concomitant]
     Indication: RASH
     Dosage: ADEQUATE DOSE, BID
     Route: 061
     Dates: start: 20190716, end: 20191023
  13. ANTEBATE [Concomitant]
     Active Substance: BETAMETHASONE DIPROPIONATE
     Indication: RASH
     Dosage: ADEQUATE DOSE, BID
     Route: 061
     Dates: start: 20181206, end: 20191023
  14. NIZORAL [Concomitant]
     Active Substance: KETOCONAZOLE
     Indication: RASH
     Dosage: ADEQUATE DOSE, QD
     Route: 061
     Dates: start: 20181206, end: 20191023
  15. TOVIAZ [Concomitant]
     Active Substance: FESOTERODINE FUMARATE
     Indication: DYSURIA
     Dosage: 4 MG, BID
     Route: 048
     Dates: start: 20180301, end: 20191023
  16. FEXOFENADINE HYDROCHLORIDE. [Concomitant]
     Active Substance: FEXOFENADINE HYDROCHLORIDE
     Indication: RASH
  17. LIDOMEX [Concomitant]
     Active Substance: PREDNISOLONE VALERATE ACETATE
     Indication: PROPHYLAXIS
     Dosage: ADEQUATE DOSE, BID
     Route: 061
     Dates: start: 20181105, end: 20191023
  18. HIRUDOID [Concomitant]
     Active Substance: GLYCOSAMINOGLYCANS
     Indication: PROPHYLAXIS
     Dosage: ADEQUATE DOSE, BID
     Route: 061
     Dates: start: 20181105, end: 20191023
  19. MOGAMULIZUMAB [Suspect]
     Active Substance: MOGAMULIZUMAB
     Indication: TROPICAL SPASTIC PARESIS
     Dosage: 0.3 MG/KG, 1X/3MONTHS
     Route: 041
     Dates: start: 20181011, end: 20190919
  20. PREDNISOLONE. [Concomitant]
     Active Substance: PREDNISOLONE
     Dosage: 30 MG, QD
     Route: 048
     Dates: start: 20191126, end: 20191205
  21. TOMIRON [Concomitant]
     Active Substance: CEFTERAM PIVOXIL
     Indication: ENCEPHALITIS
     Dosage: 100 MG, TID
     Route: 048
     Dates: start: 20191021, end: 20191023
  22. PREDNISOLONE. [Concomitant]
     Active Substance: PREDNISOLONE
     Dosage: 50 MG, QD
     Route: 048
     Dates: start: 20191115, end: 20191118
  23. PREDNISOLONE. [Concomitant]
     Active Substance: PREDNISOLONE
     Dosage: 40 MG, QD
     Route: 048
     Dates: start: 20191119, end: 20191125
  24. FEXOFENADINE HYDROCHLORIDE. [Concomitant]
     Active Substance: FEXOFENADINE HYDROCHLORIDE
     Indication: URTICARIA
     Dosage: 60 MG, PRN
     Route: 048
     Dates: start: 20190527, end: 20191023

REACTIONS (1)
  - Encephalitis [Recovering/Resolving]

NARRATIVE: CASE EVENT DATE: 20191023
